FAERS Safety Report 4681376-7 (Version None)
Quarter: 2005Q2

REPORT INFORMATION
  Report Type: 
  Country: None (occurrence: None)
  Receive Date: 20050601
  Receipt Date: 20050520
  Transmission Date: 20051028
  Serious: Yes (Other)
  Sender: FDA-Public Use
  Company Number: HQWYE951025MAY05

PATIENT
  Age: 21 Year
  Sex: Female
  Weight: 48.58 kg

DRUGS (1)
  1. ALESSE [Suspect]
     Indication: ORAL CONTRACEPTION
     Dosage: 1 TABLET 1X PER 1 DAY, ORAL
     Route: 048
     Dates: start: 20010101

REACTIONS (1)
  - PAPILLARY THYROID CANCER [None]
